FAERS Safety Report 8189671-4 (Version None)
Quarter: 2012Q1

REPORT INFORMATION
  Report Type: 
  Country: None (occurrence: None)
  Receive Date: 20120307
  Receipt Date: 20120228
  Transmission Date: 20120608
  Serious: No
  Sender: FDA-Public Use
  Company Number: US-US-EMD SERONO, INC.-7018305

PATIENT
  Sex: Female
  Weight: 88 kg

DRUGS (4)
  1. REBIF [Suspect]
     Indication: MULTIPLE SCLEROSIS
     Route: 058
     Dates: start: 20060919
  2. PROZAC [Concomitant]
     Indication: DEPRESSION
  3. FIORICET [Concomitant]
     Indication: HEADACHE
  4. NAPROXEN [Concomitant]
     Indication: HEADACHE

REACTIONS (4)
  - PALMAR ERYTHEMA [None]
  - PAIN [None]
  - FEELING HOT [None]
  - BLADDER DISORDER [None]
